FAERS Safety Report 11760435 (Version 1)
Quarter: 2015Q4

REPORT INFORMATION
  Report Type: Spontaneous
  Country: None (occurrence: US)
  Receive Date: 20151120
  Receipt Date: 20151120
  Transmission Date: 20160304
  Serious: Yes (Hospitalization)
  Sender: FDA-Public Use
  Company Number: US-INSYS THERAPEUTICS, INC-INS201511-000504

PATIENT
  Age: 62 Year
  Sex: Female

DRUGS (2)
  1. SUBSYS [Suspect]
     Active Substance: FENTANYL
     Indication: COLON CANCER
     Dates: start: 20151023
  2. SUBSYS [Suspect]
     Active Substance: FENTANYL
     Indication: BREAKTHROUGH PAIN

REACTIONS (1)
  - Brain neoplasm [Unknown]

NARRATIVE: CASE EVENT DATE: 20151107
